FAERS Safety Report 8345785-7 (Version None)
Quarter: 2012Q2

REPORT INFORMATION
  Report Type: 
  Country: None (occurrence: None)
  Receive Date: 20120508
  Receipt Date: 20120425
  Transmission Date: 20120825
  Serious: Yes (Death, Life-Threatening, Hospitalization, Disabling, Other)
  Sender: FDA-Public Use
  Company Number: US-MYLANLABS-2009AC000131

PATIENT
  Age: 83 Year
  Sex: Male
  Weight: 63.5 kg

DRUGS (33)
  1. PRILOSEC [Concomitant]
  2. QUININE SULFATE [Concomitant]
  3. ADVICOR [Concomitant]
  4. SPIRONOLACTONE [Concomitant]
  5. OMEPRAZOLE [Concomitant]
  6. PLAVIX [Concomitant]
  7. FOSINOPRIL SODIUM [Concomitant]
  8. NAMENDA [Concomitant]
  9. ULTRACET [Concomitant]
  10. AMBIEN [Concomitant]
  11. DIPHENOXYLATE [Concomitant]
  12. ALPRAZOLAM [Concomitant]
  13. FLEXERIL [Concomitant]
  14. LEXAPRO [Concomitant]
  15. TYLENOL (CAPLET) [Concomitant]
  16. LOVENOX [Concomitant]
  17. METRONIDAZOLE [Concomitant]
  18. FUROSEMIDE [Concomitant]
  19. PROTONIX [Concomitant]
  20. AUGMENTIN [Concomitant]
  21. AMOXICILLIN [Concomitant]
  22. ARICEPT [Concomitant]
  23. CEREFOLIN NAC [Concomitant]
  24. LEXAPRO [Concomitant]
  25. KLOR-CON [Concomitant]
  26. POTASSIUM CHLORIDE [Concomitant]
  27. DIGOXIN [Suspect]
     Route: 048
     Dates: start: 20060228, end: 20061210
  28. ASPIRIN [Concomitant]
  29. CEPHALEXIN [Concomitant]
  30. BROMPHENIRAMINE MALEATE + PSEUDOEPHEDRINE HCL [Concomitant]
  31. FENTANYL-100 [Concomitant]
  32. NAMENDA [Concomitant]
  33. ALDACTONE [Concomitant]

REACTIONS (68)
  - HYPERTENSION [None]
  - DEATH [None]
  - CARDIAC ARREST [None]
  - RECTAL HAEMORRHAGE [None]
  - TACHYCARDIA [None]
  - SEPSIS [None]
  - HYPOPHOSPHATAEMIA [None]
  - HYPOXIA [None]
  - DEMENTIA [None]
  - DIARRHOEA [None]
  - DEAFNESS [None]
  - DEMENTIA ALZHEIMER'S TYPE [None]
  - RHINORRHOEA [None]
  - UPPER RESPIRATORY TRACT INFECTION [None]
  - ABDOMINAL TENDERNESS [None]
  - DYSPEPSIA [None]
  - RALES [None]
  - NAUSEA [None]
  - VOMITING [None]
  - RENAL FAILURE ACUTE [None]
  - RESPIRATORY FAILURE [None]
  - SLOW RESPONSE TO STIMULI [None]
  - OXYGEN SATURATION DECREASED [None]
  - BACK PAIN [None]
  - SUTURE REMOVAL [None]
  - RHINITIS ALLERGIC [None]
  - CHEST PAIN [None]
  - DIVERTICULUM OESOPHAGEAL [None]
  - PNEUMONIA [None]
  - PAIN [None]
  - HYPOTENSION [None]
  - THERAPY CESSATION [None]
  - DYSPHAGIA [None]
  - HEADACHE [None]
  - CARDIOACTIVE DRUG LEVEL INCREASED [None]
  - GENERAL PHYSICAL HEALTH DETERIORATION [None]
  - TERMINAL STATE [None]
  - ANHEDONIA [None]
  - ECONOMIC PROBLEM [None]
  - ASTHENIA [None]
  - URINARY TRACT INFECTION [None]
  - CARDIAC FAILURE CONGESTIVE [None]
  - EMOTIONAL DISTRESS [None]
  - OESOPHAGITIS [None]
  - BLOOD PRESSURE FLUCTUATION [None]
  - SINUS HEADACHE [None]
  - FACIAL WASTING [None]
  - ILL-DEFINED DISORDER [None]
  - TOXICITY TO VARIOUS AGENTS [None]
  - MYOCARDIAL INFARCTION [None]
  - DEHYDRATION [None]
  - ATRIAL FIBRILLATION [None]
  - PYREXIA [None]
  - OROPHARYNGEAL PAIN [None]
  - PRODUCTIVE COUGH [None]
  - OESOPHAGEAL STENOSIS [None]
  - INJURY [None]
  - FATIGUE [None]
  - BLINDNESS [None]
  - CONFUSIONAL STATE [None]
  - DYSPNOEA [None]
  - GASTROENTERITIS [None]
  - FALL [None]
  - SINUSITIS [None]
  - CARDIAC MURMUR [None]
  - HAEMATURIA [None]
  - HEART RATE IRREGULAR [None]
  - OEDEMA [None]
